FAERS Safety Report 7141852-4 (Version None)
Quarter: 2010Q4

REPORT INFORMATION
  Report Type: 
  Country: None (occurrence: None)
  Receive Date: 20101203
  Receipt Date: 20101203
  Transmission Date: 20110411
  Serious: No
  Sender: FDA-Public Use
  Company Number: None

PATIENT
  Age: 64 Year
  Sex: Female
  Weight: 77.3 kg

DRUGS (1)
  1. NADOLOL [Suspect]
     Indication: MIGRAINE
     Dosage: 80 MG ONCE A DAY
     Dates: start: 20101002, end: 20101021

REACTIONS (2)
  - MIGRAINE [None]
  - PRODUCT SUBSTITUTION ISSUE [None]
